FAERS Safety Report 25207433 (Version 1)
Quarter: 2025Q2

REPORT INFORMATION
  Report Type: Spontaneous
  Country: TW (occurrence: TW)
  Receive Date: 20250417
  Receipt Date: 20250417
  Transmission Date: 20250716
  Serious: Yes (Death, Other)
  Sender: NOVARTIS
  Company Number: TW-002147023-NVSC2025TW063145

PATIENT

DRUGS (1)
  1. KYMRIAH [Suspect]
     Active Substance: TISAGENLECLEUCEL
     Indication: Product used for unknown indication
     Route: 042
     Dates: start: 20250324, end: 20250324

REACTIONS (5)
  - Infection [Fatal]
  - Cytokine release syndrome [Unknown]
  - Swelling [Unknown]
  - Swelling face [Unknown]
  - Pyrexia [Unknown]
